FAERS Safety Report 19660704 (Version 1)
Quarter: 2021Q3

REPORT INFORMATION
  Report Type: Spontaneous
  Country: US (occurrence: US)
  Receive Date: 20210805
  Receipt Date: 20210805
  Transmission Date: 20211014
  Serious: No
  Sender: FDA-Public Use
  Company Number: None

PATIENT
  Age: 74 Year
  Sex: Male
  Weight: 79 kg

DRUGS (1)
  1. ATORVASTATIN (ATORVASTATIN CA 40MG TAB) [Suspect]
     Active Substance: ATORVASTATIN CALCIUM
     Indication: HYPERLIPIDAEMIA
     Route: 048
     Dates: start: 20160601, end: 20210724

REACTIONS (6)
  - Transaminases increased [None]
  - Hepatitis viral [None]
  - Drug-induced liver injury [None]
  - Blood creatinine increased [None]
  - Myositis [None]
  - Hepatic cancer [None]

NARRATIVE: CASE EVENT DATE: 20210726
